FAERS Safety Report 11577143 (Version 3)
Quarter: 2016Q1

REPORT INFORMATION
  Report Type: Spontaneous
  Country: US (occurrence: US)
  Receive Date: 20150930
  Receipt Date: 20160107
  Transmission Date: 20160525
  Serious: Yes (Hospitalization, Other)
  Sender: FDA-Public Use
  Company Number: US-BAYER-2015-430356

PATIENT
  Age: 30 Year
  Sex: Female
  Weight: 57.6 kg

DRUGS (3)
  1. MONISTAT [Concomitant]
     Active Substance: MICONAZOLE NITRATE
  2. MIRENA [Suspect]
     Active Substance: LEVONORGESTREL
     Indication: CONTRACEPTION
     Dosage: 20 MCG/24HR, CONT
     Route: 015
     Dates: start: 20050907, end: 20140916
  3. AUGMENTIN [Concomitant]
     Active Substance: AMOXICILLIN\CLAVULANATE POTASSIUM

REACTIONS (11)
  - Pain [None]
  - Anxiety [None]
  - Post procedural discomfort [None]
  - Injury [None]
  - Emotional distress [None]
  - Device dislocation [None]
  - Device issue [None]
  - Pregnancy with contraceptive device [None]
  - Drug ineffective [None]
  - Device use error [None]
  - Device dislocation [None]

NARRATIVE: CASE EVENT DATE: 20050907
